FAERS Safety Report 9753316 (Version 1)
Quarter: 2013Q4

REPORT INFORMATION
  Report Type: Spontaneous
  Country: BR (occurrence: BR)
  Receive Date: 20131213
  Receipt Date: 20131213
  Transmission Date: 20140711
  Serious: Yes (Other)
  Sender: FDA-Public Use
  Company Number: BR-PFIZER INC-2013353371

PATIENT
  Age: 74 Year
  Sex: Female

DRUGS (3)
  1. TRAMAL [Suspect]
     Dosage: 3 DF, DAILY
     Route: 048
     Dates: start: 20131109, end: 2013
  2. LYRICA [Suspect]
     Indication: PAIN
     Dosage: 225 MG, DAILY
     Route: 048
     Dates: start: 20131109
  3. LYRICA [Suspect]
     Indication: RELAXATION THERAPY

REACTIONS (6)
  - Off label use [Unknown]
  - Mental retardation [Unknown]
  - Abnormal behaviour [Unknown]
  - Hypersomnia [Unknown]
  - Judgement impaired [Unknown]
  - Muscular weakness [Unknown]
